FAERS Safety Report 6733955-0 (Version None)
Quarter: 2010Q2

REPORT INFORMATION
  Report Type: 
  Country: None (occurrence: None)
  Receive Date: 20100520
  Receipt Date: 20100513
  Transmission Date: 20101027
  Serious: Yes (Death, Hospitalization, Other)
  Sender: FDA-Public Use
  Company Number: US-SANOFI-AVENTIS-2010SA028443

PATIENT
  Age: 66 Year
  Sex: Male

DRUGS (12)
  1. PLAVIX [Suspect]
     Route: 048
     Dates: start: 20050801
  2. LISINOPRIL [Concomitant]
     Dates: start: 20050101
  3. LASIX [Concomitant]
     Dates: start: 20050101
  4. SOMA [Concomitant]
     Dates: start: 19900101
  5. VALIUM [Concomitant]
     Dates: start: 19900101
  6. TYLENOL W/ CODEINE NO. 3 [Concomitant]
     Dosage: Q6HR PRN, USUALLY TAKEN ONCE AT NIGHT
     Dates: start: 19900101
  7. LEXAPRO [Concomitant]
     Dates: start: 20090701
  8. ALDACTONE [Concomitant]
     Dates: start: 20050101
  9. ZOCOR [Concomitant]
     Dates: start: 20050101
  10. CENTRUM [Concomitant]
     Dates: start: 20091101
  11. ECOTRIN [Concomitant]
  12. GLUCERNA ^ROSS^ [Concomitant]

REACTIONS (5)
  - CARDIAC ARREST [None]
  - CARDIAC DISORDER [None]
  - CEREBROVASCULAR ACCIDENT [None]
  - INGROWING NAIL [None]
  - WOUND INFECTION STAPHYLOCOCCAL [None]
